FAERS Safety Report 11538568 (Version 1)
Quarter: 2015Q3

REPORT INFORMATION
  Report Type: Report from Study
  Country: US (occurrence: US)
  Receive Date: 20150922
  Receipt Date: 20150922
  Transmission Date: 20151125
  Serious: Yes (Other)
  Sender: FDA-Public Use
  Company Number: US-AMGEN-USASL2015097461

PATIENT
  Sex: Female

DRUGS (1)
  1. ENBREL [Suspect]
     Active Substance: ETANERCEPT
     Indication: RHEUMATOID ARTHRITIS
     Dosage: UNK
     Route: 065
     Dates: start: 20150917

REACTIONS (5)
  - Anaphylactic reaction [Unknown]
  - Pruritus [Unknown]
  - Paraesthesia oral [Unknown]
  - Dizziness [Unknown]
  - Flushing [Unknown]

NARRATIVE: CASE EVENT DATE: 201509
